FAERS Safety Report 19305996 (Version 2)
Quarter: 2025Q4

REPORT INFORMATION
  Report Type: Spontaneous
  Country: US (occurrence: US)
  Receive Date: 20210526
  Receipt Date: 20251117
  Transmission Date: 20260117
  Serious: Yes (Hospitalization, Other)
  Sender: NOVO NORDISK
  Company Number: US-NOVOPROD-802823

PATIENT
  Age: 79 Year
  Sex: Male

DRUGS (2)
  1. INSULIN ASPART PROTAMINE AND INSULIN ASPART [Suspect]
     Active Substance: INSULIN ASPART
     Dosage: 12 IU, BID
     Route: 058
  2. INSULIN ASPART PROTAMINE AND INSULIN ASPART [Suspect]
     Active Substance: INSULIN ASPART
     Indication: Type 2 diabetes mellitus
     Dosage: 10 IU
     Route: 058
     Dates: start: 2020

REACTIONS (15)
  - Coronary artery disease [Unknown]
  - Peripheral swelling [Unknown]
  - Gastrointestinal disorder [Unknown]
  - Nausea [Unknown]
  - Acne [Unknown]
  - Contusion [Unknown]
  - Abdominal pain upper [Not Recovered/Not Resolved]
  - Pancreatic disorder [Unknown]
  - Adverse event [Not Recovered/Not Resolved]
  - Cardiac disorder [Unknown]
  - Dyspnoea [Unknown]
  - Asthenia [Unknown]
  - Constipation [Unknown]
  - Blood glucose increased [Not Recovered/Not Resolved]
  - Drug ineffective [Unknown]

NARRATIVE: CASE EVENT DATE: 20200101
